FAERS Safety Report 7443011-4 (Version None)
Quarter: 2011Q2

REPORT INFORMATION
  Report Type: 
  Country: None (occurrence: None)
  Receive Date: 20110428
  Receipt Date: 20110426
  Transmission Date: 20111010
  Serious: Yes (Hospitalization, Other)
  Sender: FDA-Public Use
  Company Number: US-PFIZER INC-2010110265

PATIENT
  Sex: Male

DRUGS (5)
  1. ZOLOFT [Concomitant]
     Indication: DEPRESSION
     Dosage: UNK
     Dates: start: 20070101
  2. XANAX [Concomitant]
     Indication: ANXIETY
     Dosage: UNK
     Dates: start: 20060101, end: 20100101
  3. CHANTIX [Suspect]
     Indication: SMOKING CESSATION THERAPY
     Dosage: UNK
     Dates: start: 20091203, end: 20091216
  4. REMERON [Concomitant]
     Indication: SLEEP DISORDER
     Dosage: UNK
     Dates: start: 20091001, end: 20100101
  5. CLONAZEPAM [Concomitant]
     Indication: ANXIETY
     Dosage: UNK
     Dates: start: 20060101, end: 20100101

REACTIONS (9)
  - SUICIDE ATTEMPT [None]
  - LOSS OF CONSCIOUSNESS [None]
  - INTENTIONAL OVERDOSE [None]
  - AMNESIA [None]
  - DEPRESSION [None]
  - IMPULSIVE BEHAVIOUR [None]
  - ANXIETY [None]
  - AGGRESSION [None]
  - PSYCHOTIC DISORDER [None]
